FAERS Safety Report 20922584 (Version 1)
Quarter: 2022Q2

REPORT INFORMATION
  Report Type: Report from Study
  Country: MX (occurrence: MX)
  Receive Date: 20220607
  Receipt Date: 20220607
  Transmission Date: 20220720
  Serious: Yes (Hospitalization)
  Sender: FDA-Public Use
  Company Number: MX-ABBVIE-22K-107-4422027-00

PATIENT
  Sex: Female
  Weight: 86 kg

DRUGS (1)
  1. HUMIRA [Interacting]
     Active Substance: ADALIMUMAB
     Indication: Rheumatoid arthritis
     Route: 058
     Dates: start: 20220326, end: 2022

REACTIONS (4)
  - Intestinal ulcer [Unknown]
  - Skin ulcer [Unknown]
  - Drug hypersensitivity [Unknown]
  - Immunodeficiency [Unknown]

NARRATIVE: CASE EVENT DATE: 20220101
